FAERS Safety Report 10643103 (Version 1)
Quarter: 2014Q4

REPORT INFORMATION
  Report Type: Spontaneous
  Country: TR (occurrence: TR)
  Receive Date: 20141210
  Receipt Date: 20141210
  Transmission Date: 20150529
  Serious: Yes (Death)
  Sender: FDA-Public Use
  Company Number: TR-ELI_LILLY_AND_COMPANY-TR201412001266

PATIENT
  Age: 23 Year
  Sex: Female
  Weight: 81 kg

DRUGS (3)
  1. PROZAC [Suspect]
     Active Substance: FLUOXETINE HYDROCHLORIDE
     Indication: DEPRESSION
     Dosage: 20 MG, BID
     Dates: start: 20120412
  2. GLIFOR [Concomitant]
     Active Substance: METFORMIN HYDROCHLORIDE
  3. YAZZ [Concomitant]

REACTIONS (9)
  - Completed suicide [Fatal]
  - Internal injury [Fatal]
  - Multiple injuries [Fatal]
  - Skull fracture [Fatal]
  - Drowning [Fatal]
  - Inappropriate schedule of drug administration [Unknown]
  - Sternal fracture [Fatal]
  - Haematocoele [Fatal]
  - Cerebral haemorrhage [Fatal]

NARRATIVE: CASE EVENT DATE: 20131107
